FAERS Safety Report 4949476-1 (Version None)
Quarter: 2006Q1

REPORT INFORMATION
  Report Type: 
  Country: None (occurrence: None)
  Receive Date: 20060315
  Receipt Date: 20060222
  Transmission Date: 20060701
  Serious: Yes (Other)
  Sender: FDA-Public Use
  Company Number: US200602004484

PATIENT
  Sex: Male

DRUGS (2)
  1. PROZAC [Suspect]
     Indication: DEPRESSION
     Dosage: 20 MG, DAILY (1/D),
  2. DESYREL [Concomitant]

REACTIONS (3)
  - CONVULSION [None]
  - GRAND MAL CONVULSION [None]
  - NERVOUS SYSTEM DISORDER [None]
